FAERS Safety Report 21614478 (Version 1)
Quarter: 2022Q4

REPORT INFORMATION
  Report Type: Spontaneous
  Country: US (occurrence: US)
  Receive Date: 20221118
  Receipt Date: 20221118
  Transmission Date: 20230113
  Serious: Yes (Hospitalization)
  Sender: FDA-Public Use
  Company Number: US-Emergent Biosolutions-22000265

PATIENT
  Age: 47 Year
  Sex: Female

DRUGS (4)
  1. NARCAN [Suspect]
     Active Substance: NALOXONE HYDROCHLORIDE
     Indication: Overdose
     Dosage: 4 MILLIGRAM UNK
     Route: 045
     Dates: start: 201912, end: 201912
  2. XTAMPZA ER [Suspect]
     Active Substance: OXYCODONE
     Indication: Migraine
     Dosage: UNK
     Route: 065
  3. XTAMPZA ER [Suspect]
     Active Substance: OXYCODONE
     Indication: Intervertebral disc protrusion
  4. XTAMPZA ER [Suspect]
     Active Substance: OXYCODONE
     Indication: Toothache

REACTIONS (9)
  - Panic reaction [Unknown]
  - Mobility decreased [Unknown]
  - Screaming [Unknown]
  - Feeling abnormal [Unknown]
  - Feeling cold [Unknown]
  - Muscle rigidity [Unknown]
  - Conversion disorder [Unknown]
  - Agitation [Unknown]
  - Unevaluable event [Unknown]

NARRATIVE: CASE EVENT DATE: 20191201
